FAERS Safety Report 12541569 (Version 1)
Quarter: 2016Q3

REPORT INFORMATION
  Report Type: Spontaneous
  Country: US (occurrence: US)
  Receive Date: 20160708
  Receipt Date: 20160708
  Transmission Date: 20161109
  Serious: No
  Sender: FDA-Public Use
  Company Number: US-PFM-US-2016-1162

PATIENT
  Sex: Female
  Weight: 8.66 kg

DRUGS (1)
  1. HEMANGEOL [Suspect]
     Active Substance: PROPRANOLOL HYDROCHLORIDE
     Indication: HAEMANGIOMA
     Dosage: 0.9 M, BID (2/DAY)
     Route: 048
     Dates: start: 20150723

REACTIONS (1)
  - Nightmare [Unknown]
